FAERS Safety Report 23042589 (Version 1)
Quarter: 2023Q4

REPORT INFORMATION
  Report Type: Spontaneous
  Country: CN (occurrence: CN)
  Receive Date: 20231009
  Receipt Date: 20231009
  Transmission Date: 20240110
  Serious: Yes (Hospitalization)
  Sender: FDA-Public Use
  Company Number: CN-ABBOTT-2023A-1370599

PATIENT
  Age: 3 Year
  Sex: Male
  Weight: 17 kg

DRUGS (1)
  1. PANCREATIN [Suspect]
     Active Substance: PANCRELIPASE
     Indication: Dyspepsia
     Route: 048
     Dates: start: 20230919, end: 20230925

REACTIONS (1)
  - Amylase increased [Unknown]

NARRATIVE: CASE EVENT DATE: 20230925
